FAERS Safety Report 9088998 (Version 1)
Quarter: 2013Q1

REPORT INFORMATION
  Report Type: Report from Study
  Country: US (occurrence: US)
  Receive Date: 20130218
  Receipt Date: 20130218
  Transmission Date: 20140127
  Serious: No
  Sender: FDA-Public Use
  Company Number: US-ABBOTT-12P-163-0922083-00

PATIENT
  Sex: Female
  Weight: 88.08 kg

DRUGS (4)
  1. SIMCOR 500MG/40MG [Suspect]
     Indication: HIGH DENSITY LIPOPROTEIN DECREASED
     Dosage: 500MG/40MG AT BEDTIME
     Dates: start: 201202
  2. SIMCOR 500MG/40MG [Suspect]
     Indication: LOW DENSITY LIPOPROTEIN INCREASED
  3. ASPIRIN [Concomitant]
     Indication: FLUSHING
     Dosage: 30 MINUTES BEFORE SIMCOR
  4. ASPIRIN [Concomitant]
     Dosage: 30 MINUTES BEFORE SIMCOR

REACTIONS (4)
  - Paraesthesia [Recovered/Resolved]
  - Erythema [Recovered/Resolved]
  - Burning sensation [Recovered/Resolved]
  - Flushing [Recovered/Resolved]
